FAERS Safety Report 7865096-3 (Version None)
Quarter: 2011Q4

REPORT INFORMATION
  Report Type: 
  Country: None (occurrence: None)
  Receive Date: 20111028
  Receipt Date: 20101013
  Transmission Date: 20120403
  Serious: No
  Sender: FDA-Public Use
  Company Number: US-GLAXOSMITHKLINE-A0886402A

PATIENT
  Age: 72 Year
  Sex: Female

DRUGS (5)
  1. SPIRIVA [Concomitant]
  2. VENTOLIN [Concomitant]
  3. ADVAIR DISKUS 100/50 [Suspect]
     Indication: CHRONIC OBSTRUCTIVE PULMONARY DISEASE
     Dosage: 1PUFF TWICE PER DAY
     Route: 055
     Dates: start: 20020101
  4. PRILOSEC [Suspect]
     Indication: HIATUS HERNIA
     Dosage: 1CAP PER DAY
     Route: 048
     Dates: start: 20060101, end: 20101008
  5. LOTREL [Concomitant]

REACTIONS (3)
  - ABDOMINAL PAIN UPPER [None]
  - NAUSEA [None]
  - FUNGAL OESOPHAGITIS [None]
